FAERS Safety Report 13375306 (Version 1)
Quarter: 2017Q1

REPORT INFORMATION
  Report Type: Spontaneous
  Country: CA (occurrence: CA)
  Receive Date: 20170327
  Receipt Date: 20170327
  Transmission Date: 20170429
  Serious: Yes (Hospitalization)
  Sender: FDA-Public Use
  Company Number: CA-TEVA-752917ACC

PATIENT
  Age: 33 Year
  Sex: Female
  Weight: 80.81 kg

DRUGS (2)
  1. PENICILLIN G SODIUM. [Suspect]
     Active Substance: PENICILLIN G SODIUM
     Indication: CELLULITIS STREPTOCOCCAL
     Dosage: 24 IU (INTERNATIONAL UNIT) DAILY;
     Route: 042
  2. FLUCONAZOLE. [Concomitant]
     Active Substance: FLUCONAZOLE

REACTIONS (1)
  - Sinus bradycardia [Recovered/Resolved]
